FAERS Safety Report 8383586-4 (Version None)
Quarter: 2012Q2

REPORT INFORMATION
  Report Type: 
  Country: None (occurrence: None)
  Receive Date: 20120524
  Receipt Date: 20120514
  Transmission Date: 20120825
  Serious: Yes (Death)
  Sender: FDA-Public Use
  Company Number: GB-NOVOPROD-351490

PATIENT
  Age: 66 Year
  Sex: Female

DRUGS (21)
  1. RANITIDINE [Concomitant]
     Dosage: 150 MG, BID
  2. ACETAMINOPHEN AND CODEINE PHOSPHATE [Concomitant]
     Dosage: UNK
  3. GLICLAZIDE [Concomitant]
     Indication: TYPE 2 DIABETES MELLITUS
     Dosage: 40 MG, QD
  4. AMLODIPINE BESYLATE [Concomitant]
     Indication: ESSENTIAL HYPERTENSION
     Dosage: 10 MG, QD
     Dates: end: 20091001
  5. AMITRIPTYLINE HCL [Concomitant]
     Indication: OSTEOARTHRITIS
     Dosage: 10 MG, QD
     Dates: end: 20101101
  6. ALBUTEROL [Concomitant]
     Indication: ASTHMA
  7. ASPIRIN [Concomitant]
     Indication: ANGIOGRAM
     Dosage: 75 MG, QD
  8. FLUOXETINE [Concomitant]
     Indication: FIBROMYALGIA
     Dosage: 20 MG, QD
  9. METFORMIN HCL [Concomitant]
     Indication: TYPE 2 DIABETES MELLITUS
     Dosage: 850 MG, TID
  10. SIMVASTATIN [Concomitant]
     Dosage: 40 MG, QD
  11. RAMIPRIL [Concomitant]
     Indication: MYOCARDIAL ISCHAEMIA
     Dosage: 5 MG, QD
     Dates: end: 20110607
  12. SALMETEROL [Concomitant]
     Indication: ASTHMA
  13. MEBEVERINE [Concomitant]
     Indication: TYPE 2 DIABETES MELLITUS
     Dosage: 135 MG, TID
  14. LEVOTHYROXINE SODIUM [Concomitant]
  15. SIMVASTATIN [Concomitant]
     Indication: TYPE 2 DIABETES MELLITUS
     Dosage: 20 MG, QD
  16. LEVOTHYROXINE SODIUM [Concomitant]
     Indication: HYPOTHYROIDISM
     Dosage: 75 MCG, QD
  17. SALMETEROL/FLUTICASONPROPIONAAT [Concomitant]
     Indication: ASTHMA
  18. VAGIFEM [Suspect]
     Indication: VULVOVAGINAL DRYNESS
     Route: 065
  19. BENDROFLUMETHIAZIDE [Concomitant]
     Indication: ESSENTIAL HYPERTENSION
     Dosage: 2.5 MG, QD
  20. NEBIVOLOL [Concomitant]
     Indication: MYOCARDIAL ISCHAEMIA
     Dosage: 2.5 MG, QD
     Dates: end: 20091001
  21. BECLOMETHASONE DIPROPIONATE [Concomitant]

REACTIONS (1)
  - CEREBRAL HAEMORRHAGE [None]
